FAERS Safety Report 5618257-8 (Version None)
Quarter: 2008Q1

REPORT INFORMATION
  Report Type: 
  Country: None (occurrence: None)
  Receive Date: 20080207
  Receipt Date: 20080130
  Transmission Date: 20080703
  Serious: Yes (Other)
  Sender: FDA-Public Use
  Company Number: US-ROCHE-544675

PATIENT
  Age: 58 Year
  Sex: Female

DRUGS (4)
  1. XELODA [Suspect]
     Indication: BREAST CANCER RECURRENT
     Route: 065
     Dates: start: 20070501, end: 20070701
  2. FEMARA [Suspect]
     Indication: DRUG USE FOR UNKNOWN INDICATION
     Dosage: TOOK TRIAL OF FEMARA FOR 2.5 MONTHS
     Route: 065
  3. AROMASIN [Suspect]
     Indication: DRUG USE FOR UNKNOWN INDICATION
     Dosage: ON AROMASIN FOR 2 WEEKS
     Route: 065
  4. MULTIVITAMIN NOS [Concomitant]

REACTIONS (2)
  - EYE INFLAMMATION [None]
  - MACULAR DEGENERATION [None]
